FAERS Safety Report 8824730 (Version 1)
Quarter: 2012Q4

REPORT INFORMATION
  Report Type: 
  Country: US (occurrence: US)
  Receive Date: 20121004
  Receipt Date: 20121004
  Transmission Date: 20130627
  Serious: No
  Sender: FDA-Public Use
  Company Number: US-PFIZER INC-2012244823

PATIENT
  Sex: Female
  Weight: 52.15 kg

DRUGS (7)
  1. CHANTIX [Suspect]
     Indication: SMOKING CESSATION THERAPY
     Dosage: UNK
  2. SEROQUEL [Concomitant]
     Indication: BIPOLAR DISORDER
     Dosage: 50 mg, daily
  3. SEROQUEL [Concomitant]
     Indication: SLEEP DISORDER
  4. OLOPATADINE HYDROCHLORIDE [Concomitant]
     Indication: SINUS DISORDER
     Dosage: UNK
     Route: 055
  5. MIRTAZAPINE [Concomitant]
     Indication: MENTAL DISORDER
     Dosage: 30 mg, daily
  6. OXYCODONE [Concomitant]
     Indication: PAIN
     Dosage: one to two tablets of 30mg, as needed
  7. MONTELUKAST [Concomitant]
     Dosage: 10 mg, daily

REACTIONS (1)
  - Abdominal distension [Recovered/Resolved]
